FAERS Safety Report 7912443-X (Version None)
Quarter: 2011Q4

REPORT INFORMATION
  Report Type: 
  Country: None (occurrence: None)
  Receive Date: 20111114
  Receipt Date: 20111107
  Transmission Date: 20120403
  Serious: Yes (Other)
  Sender: FDA-Public Use
  Company Number: US-PFIZER INC-2011252662

PATIENT
  Age: 62 Year
  Sex: Female
  Weight: 90.703 kg

DRUGS (3)
  1. FLUCONAZOLE [Suspect]
     Dosage: UNK
  2. CELEBREX [Suspect]
     Indication: ARTHRITIS
     Dosage: UNK
     Route: 048
  3. NAPROSYN [Suspect]
     Indication: ARTHRITIS
     Dosage: UNK

REACTIONS (2)
  - HYPERTENSION [None]
  - RENAL IMPAIRMENT [None]
